FAERS Safety Report 7170939-5 (Version None)
Quarter: 2010Q4

REPORT INFORMATION
  Report Type: 
  Country: None (occurrence: None)
  Receive Date: 20101217
  Receipt Date: 20100113
  Transmission Date: 20110411
  Serious: Yes (Other)
  Sender: FDA-Public Use
  Company Number: DE-BRISTOL-MYERS SQUIBB COMPANY-14851406

PATIENT
  Age: 43 Year
  Sex: Male
  Weight: 72 kg

DRUGS (4)
  1. REYATAZ [Interacting]
     Indication: HIV INFECTION
     Route: 048
     Dates: start: 20081215, end: 20090910
  2. TRIAMCINOLONE ACETONIDE [Interacting]
     Indication: INTERVERTEBRAL DISC DEGENERATION
     Dosage: INJECTION ALSO GIVEN ON 20AUG09 AND 27AUG09
     Route: 030
     Dates: start: 20090806
  3. NORVIR [Interacting]
     Indication: HIV INFECTION
     Route: 048
     Dates: start: 20081215
  4. TRIZIVIR [Suspect]
     Indication: HIV INFECTION
     Dosage: 1 DF= 1 TABS
     Route: 048
     Dates: start: 20070516, end: 20090910

REACTIONS (2)
  - CUSHING'S SYNDROME [None]
  - DRUG INTERACTION [None]
